FAERS Safety Report 12207325 (Version 1)
Quarter: 2016Q1

REPORT INFORMATION
  Report Type: Spontaneous
  Country: US (occurrence: US)
  Receive Date: 20160324
  Receipt Date: 20160324
  Transmission Date: 20160526
  Serious: Yes (Other)
  Sender: FDA-Public Use
  Company Number: US-JNJFOC-20160316068

PATIENT
  Sex: Female
  Weight: 52.16 kg

DRUGS (1)
  1. XARELTO [Suspect]
     Active Substance: RIVAROXABAN
     Indication: THROMBOSIS
     Route: 048
     Dates: end: 2016

REACTIONS (14)
  - Thrombosis [Not Recovered/Not Resolved]
  - Paranasal sinus discomfort [Unknown]
  - Skin ulcer [Not Recovered/Not Resolved]
  - Muscular weakness [Unknown]
  - Pruritus generalised [Not Recovered/Not Resolved]
  - Skin discolouration [Not Recovered/Not Resolved]
  - Bleeding time abnormal [Unknown]
  - Lymphoedema [Unknown]
  - Erythema [Not Recovered/Not Resolved]
  - Scratch [Not Recovered/Not Resolved]
  - Gastric disorder [Unknown]
  - Pain [Unknown]
  - Adverse drug reaction [Unknown]
  - Skin abrasion [Unknown]

NARRATIVE: CASE EVENT DATE: 2015
